FAERS Safety Report 18109584 (Version 5)
Quarter: 2020Q3

REPORT INFORMATION
  Report Type: Spontaneous
  Country: US (occurrence: US)
  Receive Date: 20200804
  Receipt Date: 20200903
  Transmission Date: 20201103
  Serious: No
  Sender: FDA-Public Use
  Company Number: US-PFIZER INC-2020287742

PATIENT
  Age: 59 Year
  Sex: Female
  Weight: 90.72 kg

DRUGS (6)
  1. PREMARIN [Suspect]
     Active Substance: ESTROGENS, CONJUGATED
     Indication: BLADDER PROLAPSE
     Dosage: 2 GRAMS
     Dates: start: 2000
  2. PREMARIN [Suspect]
     Active Substance: ESTROGENS, CONJUGATED
     Dosage: UNK, 2X/WEEK (0.625%, INSERTS VAGINALLY TWICE WEEKLY)
     Route: 067
  3. EVISTA [Concomitant]
     Active Substance: RALOXIFENE HYDROCHLORIDE
     Indication: BREAST CANCER
     Dosage: 60 MG, DAILY
     Dates: start: 2000
  4. PREMARIN [Suspect]
     Active Substance: ESTROGENS, CONJUGATED
     Dosage: 1 GRAM, (SHE USES IT EVERY 4 DAYS)
  5. PREMARIN [Suspect]
     Active Substance: ESTROGENS, CONJUGATED
     Dosage: 0.5G, EVERY 4 DAYS
  6. PREMARIN [Suspect]
     Active Substance: ESTROGENS, CONJUGATED
     Indication: BLADDER DISORDER
     Dosage: 1/2 GRAM, (SHE WAS ADMINISTERING THIS ONCE WEEKLY)

REACTIONS (10)
  - Body height decreased [Unknown]
  - Product use in unapproved indication [Unknown]
  - Product dose omission issue [Unknown]
  - Drug ineffective [Unknown]
  - Off label use [Unknown]
  - Contraindicated product administered [Unknown]
  - Intentional product use issue [Unknown]
  - Visual impairment [Unknown]
  - Wrong strength [Unknown]
  - Drug effective for unapproved indication [Unknown]

NARRATIVE: CASE EVENT DATE: 2000
